FAERS Safety Report 7409984-0 (Version None)
Quarter: 2011Q2

REPORT INFORMATION
  Report Type: 
  Country: None (occurrence: None)
  Receive Date: 20110412
  Receipt Date: 20110406
  Transmission Date: 20111010
  Serious: Yes (Other)
  Sender: FDA-Public Use
  Company Number: GB-PFIZER INC-2011058578

PATIENT
  Sex: Female
  Weight: 60 kg

DRUGS (10)
  1. ACETAMINOPHEN AND CODEINE PHOSPHATE [Concomitant]
     Indication: HEADACHE
     Dosage: 2 DF, AS NEEDED
     Route: 048
     Dates: start: 20100506
  2. LORATADINE [Concomitant]
     Indication: HYPERSENSITIVITY
     Dosage: 10 MG, UNK
     Route: 048
     Dates: start: 20090603
  3. PHOSPHATES ENEMA [Concomitant]
     Indication: INTESTINAL FUNCTIONAL DISORDER
     Dosage: UNK
     Route: 054
     Dates: start: 20091102
  4. GABAPENTIN [Suspect]
     Indication: HEADACHE
     Dosage: 900 MG, 3X/DAY
     Dates: end: 20110201
  5. AMITRIPTYLINE [Concomitant]
     Indication: HEADACHE
     Dosage: 100 MG, UNK
     Route: 048
     Dates: start: 20090306
  6. GABAPENTIN [Suspect]
     Indication: PAIN
     Dosage: 300 MG, 3X/DAY
     Route: 048
     Dates: start: 20110107
  7. SUMATRIPTAN [Concomitant]
     Indication: MIGRAINE
     Dosage: UNK
     Route: 045
     Dates: start: 20050914
  8. GABAPENTIN [Suspect]
     Indication: FACIAL PAIN
     Dosage: 600 MG, 3X/DAY
  9. DICLOFENAC [Concomitant]
     Indication: MIGRAINE
     Dosage: 50 MG, UNK
     Route: 048
     Dates: start: 20050914
  10. PHOSPHATES ENEMA [Concomitant]
     Indication: CONSTIPATION

REACTIONS (2)
  - SOMNAMBULISM [None]
  - SLEEP TALKING [None]
